FAERS Safety Report 11624965 (Version 2)
Quarter: 2015Q4

REPORT INFORMATION
  Report Type: Spontaneous
  Country: BR (occurrence: BR)
  Receive Date: 20151013
  Receipt Date: 20151014
  Transmission Date: 20160304
  Serious: Yes (Other)
  Sender: FDA-Public Use
  Company Number: BR-PFIZER INC-2015333785

PATIENT
  Age: 69 Year
  Sex: Female
  Weight: 72 kg

DRUGS (4)
  1. XALATAN [Suspect]
     Active Substance: LATANOPROST
     Indication: GLAUCOMA
     Dosage: 1 DROP IN RIGHT EYE (UNSPECIFIED FREQUENCY)
     Route: 047
  2. MAXILERG [Concomitant]
     Indication: EYE PAIN
  3. TIMOPTOL [Concomitant]
     Active Substance: TIMOLOL
     Indication: EYE DISORDER
     Dosage: 1 DROP IN LEFT EYE (UNSPECIFIED FREQUENCY)
  4. XALATAN [Suspect]
     Active Substance: LATANOPROST
     Dosage: UNK

REACTIONS (3)
  - Glaucoma [Unknown]
  - Cataract [Unknown]
  - Visual field defect [Unknown]
